FAERS Safety Report 17419305 (Version 1)
Quarter: 2020Q1

REPORT INFORMATION
  Report Type: Spontaneous
  Country: FR (occurrence: FR)
  Receive Date: 20200214
  Receipt Date: 20200214
  Transmission Date: 20200409
  Serious: Yes (Disabling)
  Sender: FDA-Public Use
  Company Number: FR-MYLANLABS-2020M1016418

PATIENT
  Age: 69 Year
  Sex: Female

DRUGS (6)
  1. TEMESTA                            /00273201/ [Concomitant]
     Active Substance: LORAZEPAM
  2. RAMIPRIL. [Concomitant]
     Active Substance: RAMIPRIL
  3. IBUPROFEN. [Suspect]
     Active Substance: IBUPROFEN
     Indication: HEADACHE
     Route: 048
     Dates: end: 20170911
  4. LERCAN [Concomitant]
     Active Substance: LERCANIDIPINE
  5. LEVOTHYROX [Concomitant]
     Active Substance: LEVOTHYROXINE
  6. ASPIRINE PROTECT [Suspect]
     Active Substance: ASPIRIN
     Indication: CARDIOVASCULAR EVENT PROPHYLAXIS
     Route: 048
     Dates: end: 20170911

REACTIONS (2)
  - Cerebral haematoma [Recovered/Resolved with Sequelae]
  - Frontotemporal dementia [Recovered/Resolved]

NARRATIVE: CASE EVENT DATE: 20170911
